FAERS Safety Report 8268478-3 (Version None)
Quarter: 2012Q2

REPORT INFORMATION
  Report Type: 
  Country: None (occurrence: None)
  Receive Date: 20120409
  Receipt Date: 20120405
  Transmission Date: 20120825
  Serious: Yes (Hospitalization)
  Sender: FDA-Public Use
  Company Number: PHHO2012FR004470

PATIENT
  Sex: Female
  Weight: 54 kg

DRUGS (2)
  1. TEGRETOL [Suspect]
     Dosage: UNK
     Dates: start: 20100601
  2. FTY [Suspect]
     Indication: RELAPSING-REMITTING MULTIPLE SCLEROSIS
     Dosage: 0.5 MG, QD
     Route: 048
     Dates: start: 20111109

REACTIONS (2)
  - TRIGEMINAL NEURALGIA [None]
  - BRONCHITIS [None]
